FAERS Safety Report 17649137 (Version 1)
Quarter: 2020Q2

REPORT INFORMATION
  Report Type: Report from Study
  Country: GB (occurrence: GB)
  Receive Date: 20200409
  Receipt Date: 20200409
  Transmission Date: 20200713
  Serious: Yes (Other)
  Sender: FDA-Public Use
  Company Number: GB-EMD SERONO-9156396

PATIENT
  Age: 9 Year
  Sex: Female

DRUGS (1)
  1. SAIZEN [Suspect]
     Active Substance: SOMATROPIN
     Indication: GROWTH HORMONE DEFICIENCY
     Dosage: CARTIDGES
     Route: 058
     Dates: start: 20131119

REACTIONS (4)
  - Infection [Unknown]
  - Intentional dose omission [Unknown]
  - Lower respiratory tract infection [Unknown]
  - Malaise [Unknown]
